FAERS Safety Report 6999208-0 (Version None)
Quarter: 2010Q3

REPORT INFORMATION
  Report Type: 
  Country: None (occurrence: None)
  Receive Date: 20100920
  Receipt Date: 20100309
  Transmission Date: 20110219
  Serious: No
  Sender: FDA-Public Use
  Company Number: US-ASTRAZENECA-2009SE27752

PATIENT
  Age: 42 Year
  Sex: Male
  Weight: 129.3 kg

DRUGS (7)
  1. SEROQUEL [Suspect]
     Indication: POST-TRAUMATIC STRESS DISORDER
     Route: 048
     Dates: start: 20021101
  2. SEROQUEL [Suspect]
     Indication: SCHIZOPHRENIA
     Route: 048
     Dates: start: 20021101
  3. SEROQUEL [Suspect]
     Indication: DEPRESSION
     Route: 048
     Dates: start: 20021101
  4. ABILIFY [Concomitant]
     Dates: start: 20080101
  5. RISPERDAL [Concomitant]
     Dates: start: 20030101
  6. EFFEXOR XR [Concomitant]
     Indication: DEPRESSION
  7. ALPRAZOLAM [Concomitant]
     Indication: ANTISOCIAL PERSONALITY DISORDER

REACTIONS (8)
  - BLOOD CHOLESTEROL INCREASED [None]
  - BLOOD TRIGLYCERIDES INCREASED [None]
  - CLAVICLE FRACTURE [None]
  - DIABETES MELLITUS [None]
  - HYPERLIPIDAEMIA [None]
  - JOINT INJURY [None]
  - OBESITY [None]
  - TYPE 2 DIABETES MELLITUS [None]
